FAERS Safety Report 5723829-6 (Version None)
Quarter: 2008Q2

REPORT INFORMATION
  Report Type: 
  Country: None (occurrence: None)
  Receive Date: 20080430
  Receipt Date: 20080423
  Transmission Date: 20081010
  Serious: No
  Sender: FDA-Public Use
  Company Number: US-BAXTER-2008BH004247

PATIENT
  Sex: Male

DRUGS (1)
  1. HEPARIN SODIUM [Suspect]
     Indication: DRUG USE FOR UNKNOWN INDICATION
     Dosage: DOSE UNIT:UNKNOWN
     Route: 065

REACTIONS (7)
  - ANXIETY [None]
  - BURNING SENSATION [None]
  - DISCOMFORT [None]
  - HYPOAESTHESIA [None]
  - INJECTION SITE INDURATION [None]
  - MALAISE [None]
  - PAIN [None]
